FAERS Safety Report 6115070-2 (Version None)
Quarter: 2009Q1

REPORT INFORMATION
  Report Type: 
  Country: None (occurrence: None)
  Receive Date: 20090313
  Receipt Date: 20090306
  Transmission Date: 20090719
  Serious: Yes (Hospitalization)
  Sender: FDA-Public Use
  Company Number: B0562041A

PATIENT
  Age: 78 Year
  Sex: Male
  Weight: 49 kg

DRUGS (7)
  1. PAROXETINE HCL [Suspect]
     Indication: POST HERPETIC NEURALGIA
     Route: 048
  2. AMITRIPTYLINE HYDROCHLORIDE [Suspect]
     Indication: POST HERPETIC NEURALGIA
     Dosage: 10MG THREE TIMES PER DAY
     Route: 065
  3. MEXILETINE HYDROCHLORIDE [Concomitant]
     Dosage: 50MG THREE TIMES PER DAY
     Route: 065
  4. ETODOLAC [Concomitant]
     Dosage: 200MG TWICE PER DAY
     Route: 048
  5. LIMAPROST [Concomitant]
     Dosage: 5MCG THREE TIMES PER DAY
     Route: 048
  6. CLONAZEPAM [Concomitant]
     Dosage: .5MG TWICE PER DAY
     Route: 048
  7. UNKNOWN DRUG [Concomitant]
     Indication: DRUG USE FOR UNKNOWN INDICATION

REACTIONS (15)
  - C-REACTIVE PROTEIN INCREASED [None]
  - DISORIENTATION [None]
  - DYSSTASIA [None]
  - HEADACHE [None]
  - HYPERREFLEXIA [None]
  - HYPOMANIA [None]
  - MYOCLONIC EPILEPSY [None]
  - MYOCLONUS [None]
  - NASOPHARYNGITIS [None]
  - OROPHARYNGEAL PAIN [None]
  - PYREXIA [None]
  - SEROTONIN SYNDROME [None]
  - SOMNOLENCE [None]
  - TREMOR [None]
  - WHITE BLOOD CELL COUNT INCREASED [None]
